FAERS Safety Report 11933535 (Version 1)
Quarter: 2016Q1

REPORT INFORMATION
  Report Type: Spontaneous
  Country: US (occurrence: None)
  Receive Date: 20160120
  Receipt Date: 20160120
  Transmission Date: 20160526
  Serious: Yes (Other)
  Sender: FDA-Public Use
  Company Number: None

PATIENT
  Age: 58 Year
  Sex: Female

DRUGS (1)
  1. H.P. ACTHAR [Suspect]
     Active Substance: CORTICOTROPIN
     Indication: RHEUMATOID ARTHRITIS
     Dosage: H.P.ACTHAR GEL 80 W/ML/5ML; 2XWEEKX12WEEK, SUBCUTANEOUS
     Route: 058
     Dates: start: 20151222

REACTIONS (2)
  - Abnormal behaviour [None]
  - Mood altered [None]

NARRATIVE: CASE EVENT DATE: 20160118
